FAERS Safety Report 8854612 (Version 2)
Quarter: 2012Q4

REPORT INFORMATION
  Report Type: 
  Country: IT (occurrence: IT)
  Receive Date: 20121023
  Receipt Date: 20121030
  Transmission Date: 20130627
  Serious: Yes (Hospitalization, Other)
  Sender: FDA-Public Use
  Company Number: IT-PFIZER INC-2012259977

PATIENT
  Age: 42 Year
  Sex: Female

DRUGS (4)
  1. RAMIPRIL [Suspect]
     Indication: HYPERTENSION
     Dosage: UNK
     Route: 048
  2. RAMIPRIL [Suspect]
     Indication: HEADACHE
     Dosage: [70 mg total dose]
     Route: 048
     Dates: start: 20121010, end: 20121010
  3. LOBIVON [Suspect]
     Indication: HYPERTENSION
     Dosage: UNK
     Route: 048
  4. LOBIVON [Suspect]
     Indication: HEADACHE
     Dosage: [14 DF total dose (5 mg)]
     Route: 048
     Dates: start: 20121010, end: 20121010

REACTIONS (2)
  - Hypotension [Recovered/Resolved]
  - Drug abuse [Unknown]
